FAERS Safety Report 23416591 (Version 3)
Quarter: 2024Q3

REPORT INFORMATION
  Report Type: Spontaneous
  Country: US (occurrence: US)
  Receive Date: 20240118
  Receipt Date: 20240722
  Transmission Date: 20241016
  Serious: Yes (Hospitalization, Other)
  Sender: UCB
  Company Number: US-UCBSA-2024002192

PATIENT
  Sex: Female
  Weight: 77.098 kg

DRUGS (1)
  1. CIMZIA [Suspect]
     Active Substance: CERTOLIZUMAB PEGOL
     Indication: Psoriasis
     Dosage: 400 MILLIGRAM, EV 4 WEEKS
     Route: 058
     Dates: start: 202308

REACTIONS (4)
  - Gallbladder operation [Unknown]
  - Gallbladder disorder [Unknown]
  - Product temperature excursion issue [Unknown]
  - Product distribution issue [Unknown]
